FAERS Safety Report 15492769 (Version 1)
Quarter: 2018Q4

REPORT INFORMATION
  Report Type: Spontaneous
  Country: US (occurrence: US)
  Receive Date: 20181004
  Receipt Date: 20181004
  Transmission Date: 20190205
  Serious: No
  Sender: FDA-Public Use
  Company Number: None

PATIENT
  Age: 25 Year
  Sex: Female
  Weight: 120.2 kg

DRUGS (1)
  1. NEXPLANON [Suspect]
     Active Substance: ETONOGESTREL
     Dates: start: 20180210, end: 20180306

REACTIONS (8)
  - Cold sweat [None]
  - Hot flush [None]
  - Hypotension [None]
  - Headache [None]
  - Pain [None]
  - Arthralgia [None]
  - Fall [None]
  - Loss of consciousness [None]

NARRATIVE: CASE EVENT DATE: 20180302
